FAERS Safety Report 15288933 (Version 1)
Quarter: 2018Q3

REPORT INFORMATION
  Report Type: Spontaneous
  Country: US (occurrence: US)
  Receive Date: 20180803
  Receipt Date: 20180803
  Transmission Date: 20181010
  Serious: No
  Sender: FDA-Public Use
  Company Number: None

PATIENT
  Age: 19 Year
  Sex: Female

DRUGS (1)
  1. DUPIXENT [Suspect]
     Active Substance: DUPILUMAB

REACTIONS (2)
  - Unevaluable event [None]
  - Infection [None]

NARRATIVE: CASE EVENT DATE: 20180803
